FAERS Safety Report 6867189-6 (Version None)
Quarter: 2010Q3

REPORT INFORMATION
  Report Type: 
  Country: None (occurrence: None)
  Receive Date: 20100722
  Receipt Date: 20100715
  Transmission Date: 20110219
  Serious: Yes (Other)
  Sender: FDA-Public Use
  Company Number: B0653336A

PATIENT
  Age: 16 Year
  Sex: Female
  Weight: 75 kg

DRUGS (2)
  1. KEPPRA [Suspect]
     Indication: MYOCLONIC EPILEPSY
     Dosage: 1G TWICE PER DAY
     Route: 048
     Dates: start: 20070101, end: 20100407
  2. SUMATRIPTAN [Suspect]
     Indication: MIGRAINE
     Route: 048
     Dates: end: 20100407

REACTIONS (7)
  - ABDOMINAL PAIN [None]
  - BLOOD AMYLASE INCREASED [None]
  - MIGRAINE [None]
  - PANCREATITIS [None]
  - PARAESTHESIA [None]
  - THROMBOCYTOPENIA [None]
  - VOMITING [None]
